FAERS Safety Report 9734580 (Version 3)
Quarter: 2013Q4

REPORT INFORMATION
  Report Type: Spontaneous
  Country: AU (occurrence: AU)
  Receive Date: 20131206
  Receipt Date: 20131230
  Transmission Date: 20140711
  Serious: Yes (Life-Threatening, Hospitalization, Disabling, Other)
  Sender: FDA-Public Use
  Company Number: AU-AMGEN-AUSSP2013068460

PATIENT
  Age: 70 Year
  Sex: Female
  Weight: 45 kg

DRUGS (3)
  1. XGEVA [Suspect]
     Indication: METASTASES TO BONE
     Dosage: 120 MG, QMO
     Route: 058
     Dates: start: 20120901
  2. VITAMIN D                          /00107901/ [Concomitant]
     Dosage: UNK
     Route: 065
     Dates: start: 20131009
  3. CALCIUM [Concomitant]
     Dosage: UNK
     Route: 065
     Dates: start: 20131009

REACTIONS (22)
  - Cough [Not Recovered/Not Resolved]
  - Dyspnoea [Not Recovered/Not Resolved]
  - Metastases to lung [Not Recovered/Not Resolved]
  - Blood test abnormal [Recovered/Resolved]
  - Infection [Recovered/Resolved]
  - Pyrexia [Not Recovered/Not Resolved]
  - Rib fracture [Unknown]
  - Cardiac failure [Unknown]
  - Eating disorder [Unknown]
  - Abdominal discomfort [Unknown]
  - Device failure [Unknown]
  - Malaise [Unknown]
  - Gingival pain [Not Recovered/Not Resolved]
  - Weight decreased [Not Recovered/Not Resolved]
  - Decreased appetite [Not Recovered/Not Resolved]
  - Mouth ulceration [Not Recovered/Not Resolved]
  - Vomiting [Not Recovered/Not Resolved]
  - Alopecia [Unknown]
  - Blister [Not Recovered/Not Resolved]
  - Dizziness [Not Recovered/Not Resolved]
  - Nausea [Not Recovered/Not Resolved]
  - Asthenia [Not Recovered/Not Resolved]
